FAERS Safety Report 25906028 (Version 1)
Quarter: 2025Q4

REPORT INFORMATION
  Report Type: Spontaneous
  Country: US (occurrence: None)
  Receive Date: 20251010
  Receipt Date: 20251010
  Transmission Date: 20260118
  Serious: Yes (Hospitalization)
  Sender: FDA-CTU
  Company Number: None

PATIENT
  Age: 58 Year
  Sex: Female
  Weight: 81.9 kg

DRUGS (14)
  1. XELODA [Suspect]
     Active Substance: CAPECITABINE
     Indication: Drug therapy
     Dates: end: 20251001
  2. ELOXATIN [Suspect]
     Active Substance: OXALIPLATIN
     Indication: Drug therapy
     Dates: end: 20250917
  3. ATORVASTATIN [Concomitant]
     Active Substance: ATORVASTATIN
  4. azelastine 137rncg/spray [Concomitant]
  5. COMPAZINE [Concomitant]
     Active Substance: PROCHLORPERAZINE MALEATE
  6. desvenlafaxine succinate 100mg [Concomitant]
  7. levoxyl 150mcg [Concomitant]
  8. lidocaine 2.5% cream [Concomitant]
  9. LOPERAMIDE [Concomitant]
     Active Substance: LOPERAMIDE
  10. prilocaine 2.5% cream [Concomitant]
  11. SUMATRIPTAN [Concomitant]
     Active Substance: SUMATRIPTAN
  12. TRAMADOL [Concomitant]
     Active Substance: TRAMADOL
  13. ZOFRAN [Concomitant]
     Active Substance: ONDANSETRON HYDROCHLORIDE
  14. ZYPREXA [Concomitant]
     Active Substance: OLANZAPINE

REACTIONS (4)
  - Enteritis [None]
  - Hypokalaemia [None]
  - Nausea [None]
  - Vomiting [None]

NARRATIVE: CASE EVENT DATE: 20251004
